FAERS Safety Report 10624869 (Version 6)
Quarter: 2018Q2

REPORT INFORMATION
  Report Type: Spontaneous
  Country: US (occurrence: US)
  Receive Date: 20141204
  Receipt Date: 20180423
  Transmission Date: 20180711
  Serious: Yes (Hospitalization, Other)
  Sender: FDA-Public Use
  Company Number: US-ASTRAZENECA-2014SE91400

PATIENT
  Age: 49 Year
  Sex: Female
  Weight: 76.7 kg

DRUGS (23)
  1. IRON [Concomitant]
     Active Substance: IRON
     Indication: ANAEMIA
     Dosage: DAILY
  2. MAGNESIUM [Concomitant]
     Active Substance: MAGNESIUM
     Indication: SUPPLEMENTATION THERAPY
  3. NEXIUM [Suspect]
     Active Substance: ESOMEPRAZOLE MAGNESIUM
     Indication: GASTROOESOPHAGEAL REFLUX DISEASE
     Route: 048
     Dates: start: 201407
  4. NEXIUM [Suspect]
     Active Substance: ESOMEPRAZOLE MAGNESIUM
     Indication: GASTROOESOPHAGEAL REFLUX DISEASE
     Route: 048
     Dates: start: 2016, end: 2016
  5. NEXIUM [Suspect]
     Active Substance: ESOMEPRAZOLE MAGNESIUM
     Indication: GASTROOESOPHAGEAL REFLUX DISEASE
     Route: 048
     Dates: start: 2016, end: 2016
  6. NEXIUM [Suspect]
     Active Substance: ESOMEPRAZOLE MAGNESIUM
     Indication: GASTROOESOPHAGEAL REFLUX DISEASE
     Route: 048
     Dates: start: 201701, end: 20180209
  7. OMEPRAZOLE. [Suspect]
     Active Substance: OMEPRAZOLE
     Indication: GASTRITIS
     Route: 048
  8. PROBIOTICS [Concomitant]
     Active Substance: PROBIOTICS NOS
     Indication: ILL-DEFINED DISORDER
     Dosage: 25 DAILY
     Route: 048
     Dates: start: 2012
  9. ALOE VERA [Concomitant]
     Active Substance: ALOE VERA LEAF
     Indication: GASTROOESOPHAGEAL REFLUX DISEASE
     Dosage: 1TSP DAILY
     Route: 048
     Dates: start: 2012
  10. CARAFATE [Concomitant]
     Active Substance: SUCRALFATE
     Indication: OESOPHAGEAL DISORDER
     Route: 048
     Dates: start: 201711
  11. ALOE VERA [Concomitant]
     Active Substance: ALOE VERA LEAF
     Indication: SUPPLEMENTATION THERAPY
  12. MULTI VITAMIN WITH MINERALS [Concomitant]
     Indication: NUTRITIONAL SUPPLEMENTATION
     Dosage: DAILY
     Route: 048
     Dates: start: 2012
  13. VITAMIN D 2 [Concomitant]
     Indication: BONE DISORDER
     Route: 048
     Dates: start: 2012
  14. NEXIUM [Suspect]
     Active Substance: ESOMEPRAZOLE MAGNESIUM
     Indication: GASTROOESOPHAGEAL REFLUX DISEASE
     Route: 048
     Dates: start: 20170104
  15. NEXIUM [Suspect]
     Active Substance: ESOMEPRAZOLE MAGNESIUM
     Indication: GASTROOESOPHAGEAL REFLUX DISEASE
     Route: 048
     Dates: start: 201701, end: 20180209
  16. VIT B 12 [Concomitant]
     Indication: NERVOUS SYSTEM DISORDER
     Route: 048
  17. BUSPIRONE HYDROCHLORIDE. [Concomitant]
     Active Substance: BUSPIRONE HYDROCHLORIDE
     Indication: DEPRESSION
     Route: 048
     Dates: start: 201712
  18. BUSPIRONE HYDROCHLORIDE. [Concomitant]
     Active Substance: BUSPIRONE HYDROCHLORIDE
     Indication: ILL-DEFINED DISORDER
     Route: 048
     Dates: start: 201712
  19. NEXIUM [Suspect]
     Active Substance: ESOMEPRAZOLE MAGNESIUM
     Indication: GASTROOESOPHAGEAL REFLUX DISEASE
     Route: 048
     Dates: start: 201407
  20. NEXIUM [Suspect]
     Active Substance: ESOMEPRAZOLE MAGNESIUM
     Indication: GASTROOESOPHAGEAL REFLUX DISEASE
     Route: 048
     Dates: start: 20170104
  21. VITAMIN C [Concomitant]
     Active Substance: ASCORBIC ACID
     Indication: SUPPLEMENTATION THERAPY
  22. AMINO ACIDS NOS [Concomitant]
     Active Substance: AMINO ACIDS
     Indication: SUPPLEMENTATION THERAPY
  23. FISH OIL [Concomitant]
     Active Substance: FISH OIL
     Indication: CEREBRAL DISORDER
     Route: 048
     Dates: start: 2012

REACTIONS (19)
  - Abscess [Not Recovered/Not Resolved]
  - Gastrooesophageal reflux disease [Unknown]
  - Weight increased [Not Recovered/Not Resolved]
  - Candida infection [Not Recovered/Not Resolved]
  - Gastric disorder [Recovered/Resolved]
  - Abdominal distension [Unknown]
  - Abdominal pain upper [Unknown]
  - Product use in unapproved indication [Not Recovered/Not Resolved]
  - Bacterial abdominal infection [Unknown]
  - Gastric perforation [Unknown]
  - Hiatus hernia [Not Recovered/Not Resolved]
  - Drug ineffective [Not Recovered/Not Resolved]
  - Off label use [Not Recovered/Not Resolved]
  - Haematemesis [Unknown]
  - Acne [Unknown]
  - Hyperhidrosis [Recovered/Resolved]
  - Depression [Unknown]
  - Peritoneal permeability increased [Unknown]
  - Intentional product misuse [Not Recovered/Not Resolved]

NARRATIVE: CASE EVENT DATE: 2015
